FAERS Safety Report 20351918 (Version 1)
Quarter: 2022Q1

REPORT INFORMATION
  Report Type: Spontaneous
  Country: US (occurrence: None)
  Receive Date: 20220118
  Receipt Date: 20220118
  Transmission Date: 20220424
  Serious: No
  Sender: FDA-Public Use
  Company Number: None

PATIENT

DRUGS (1)
  1. HYDROXYPROGESTERONE CAPROATE [Suspect]
     Active Substance: HYDROXYPROGESTERONE CAPROATE
     Dosage: OTHER FREQUENCY : ONCE A WEEK;?
     Route: 030

REACTIONS (2)
  - Injection site rash [None]
  - Rash [None]
